FAERS Safety Report 16035621 (Version 7)
Quarter: 2021Q2

REPORT INFORMATION
  Report Type: Spontaneous
  Country: US (occurrence: US)
  Receive Date: 20190305
  Receipt Date: 20210614
  Transmission Date: 20210716
  Serious: Yes (Other)
  Sender: FDA-Public Use
  Company Number: US-PFIZER INC-2019095235

PATIENT
  Sex: Male
  Weight: 89.98 kg

DRUGS (1)
  1. LYRICA [Suspect]
     Active Substance: PREGABALIN
     Indication: NEUROPATHY PERIPHERAL
     Dosage: UNK

REACTIONS (4)
  - Spinal fracture [Unknown]
  - Feeling abnormal [Unknown]
  - Gait disturbance [Unknown]
  - Body height decreased [Unknown]

NARRATIVE: CASE EVENT DATE: 2014
